APPROVED DRUG PRODUCT: EVEROLIMUS
Active Ingredient: EVEROLIMUS
Strength: 10MG
Dosage Form/Route: TABLET;ORAL
Application: A219955 | Product #004 | TE Code: AB
Applicant: NOVUGEN ONCOLOGY SDN BHD
Approved: Oct 30, 2025 | RLD: No | RS: No | Type: RX